FAERS Safety Report 9536066 (Version 1)
Quarter: 2013Q3

REPORT INFORMATION
  Report Type: Spontaneous
  Country: US (occurrence: None)
  Receive Date: 20130917
  Receipt Date: 20130917
  Transmission Date: 20140515
  Serious: Yes (Disabling)
  Sender: FDA-Public Use
  Company Number: None

PATIENT
  Age: 66 Year
  Sex: Male
  Weight: 86.18 kg

DRUGS (1)
  1. PICATO [Suspect]
     Indication: HYPERKERATOSIS
     Dosage: 3 TUBES 0.47 GRAMS EACH ONCE DAILY APPLIED TO A SURFACE USUALLY THE SKIN
     Dates: start: 20130809, end: 20130811

REACTIONS (8)
  - Application site erythema [None]
  - Application site vesicles [None]
  - Application site pain [None]
  - Application site pruritus [None]
  - Infection [None]
  - Eye pruritus [None]
  - Discomfort [None]
  - Eye disorder [None]
